FAERS Safety Report 6989189-8 (Version None)
Quarter: 2010Q3

REPORT INFORMATION
  Report Type: 
  Country: None (occurrence: None)
  Receive Date: 20100916
  Receipt Date: 20070321
  Transmission Date: 20110219
  Serious: Yes (Death)
  Sender: FDA-Public Use
  Company Number: FR-PFIZER INC-2009261648

PATIENT
  Sex: Female
  Weight: 45 kg

DRUGS (9)
  1. LYRICA [Interacting]
     Indication: PAIN
     Dosage: 75 MG, 2X/DAY
     Route: 048
     Dates: start: 20070316, end: 20070320
  2. LYRICA [Interacting]
     Indication: NEURALGIA
  3. MORPHINE HCL ELIXIR [Interacting]
     Indication: PAIN
     Dosage: UNK
     Route: 058
     Dates: start: 20070305, end: 20070320
  4. AMITRIPTYLINE HYDROCHLORIDE [Interacting]
     Indication: NEURALGIA
     Dosage: 15 DROPS, 1X/DAY
     Route: 048
     Dates: start: 20070302, end: 20070320
  5. LARGACTIL [Suspect]
     Dosage: 9 DROPS, 3X/DAY
     Route: 048
     Dates: start: 20070312
  6. ANASTROZOLE [Concomitant]
     Dosage: UNK
     Route: 048
     Dates: start: 20070201
  7. ISOPTIN [Concomitant]
     Route: 048
  8. NEXIUM [Concomitant]
     Dosage: UNK
     Route: 048
     Dates: start: 20070302
  9. DIGOXIN [Concomitant]
     Dosage: UNK
     Route: 048
     Dates: start: 20070312

REACTIONS (6)
  - ALTERED STATE OF CONSCIOUSNESS [None]
  - DRUG INTERACTION [None]
  - DYSKINESIA [None]
  - MUSCLE TWITCHING [None]
  - MYOCLONUS [None]
  - SOMNOLENCE [None]
